FAERS Safety Report 4345565-3 (Version None)
Quarter: 2004Q1

REPORT INFORMATION
  Report Type: 
  Country: None (occurrence: None)
  Receive Date: 20040325
  Receipt Date: 20040211
  Transmission Date: 20041129
  Serious: No
  Sender: FDA-Public Use
  Company Number: USA040259093

PATIENT
  Age: 66 Year
  Sex: Female

DRUGS (1)
  1. FORTEO [Suspect]
     Indication: OSTEOPOROSIS
     Dates: start: 20040131

REACTIONS (5)
  - ABDOMINAL PAIN UPPER [None]
  - FEELING ABNORMAL [None]
  - MUSCLE CRAMP [None]
  - PAIN IN EXTREMITY [None]
  - PNEUMONIA [None]
